FAERS Safety Report 8138845-7 (Version None)
Quarter: 2012Q1

REPORT INFORMATION
  Report Type: 
  Country: None (occurrence: None)
  Receive Date: 20120215
  Receipt Date: 20120206
  Transmission Date: 20120608
  Serious: Yes (Other)
  Sender: FDA-Public Use
  Company Number: US-ELI_LILLY_AND_COMPANY-US201008008522

PATIENT
  Sex: Female

DRUGS (9)
  1. ADVAIR DISKUS 100/50 [Concomitant]
  2. HYDROCHLOROTHIAZIDE [Concomitant]
  3. FORTEO [Suspect]
     Dosage: 20 UG, QD
  4. FORTEO [Suspect]
     Dosage: 20 UG, QD
  5. SINGULAIR [Concomitant]
  6. SPIRIVA [Concomitant]
  7. FORTEO [Suspect]
     Indication: OSTEOPOROSIS
     Dosage: 20 UG, DAILY (1/D)
     Route: 065
     Dates: start: 20100501
  8. ALPRAZOLAM [Concomitant]
     Indication: ANXIETY
  9. PROAIR HFA [Concomitant]

REACTIONS (9)
  - SKIN ATROPHY [None]
  - WOUND SECRETION [None]
  - WEIGHT DECREASED [None]
  - MOVEMENT DISORDER [None]
  - ANKLE OPERATION [None]
  - MUSCLE SPASMS [None]
  - SKIN EXFOLIATION [None]
  - IMPAIRED HEALING [None]
  - PAIN IN EXTREMITY [None]
